FAERS Safety Report 11924004 (Version 1)
Quarter: 2016Q1

REPORT INFORMATION
  Report Type: Report from Study
  Country: US (occurrence: US)
  Receive Date: 20160118
  Receipt Date: 20160118
  Transmission Date: 20160526
  Serious: Yes (Other)
  Sender: FDA-Public Use
  Company Number: US-BAYER-2015-450276

PATIENT
  Age: 77 Year
  Sex: Male

DRUGS (1)
  1. STIVARGA [Suspect]
     Active Substance: REGORAFENIB
     Indication: COLON CANCER
     Dosage: 160MG DAILY ONCE DAILY
     Route: 048
     Dates: start: 20151001, end: 20151020

REACTIONS (4)
  - Blood pressure fluctuation [None]
  - Musculoskeletal disorder [Recovered/Resolved]
  - Skin discolouration [Recovered/Resolved]
  - Palmar-plantar erythrodysaesthesia syndrome [Recovered/Resolved]

NARRATIVE: CASE EVENT DATE: 20151009
